FAERS Safety Report 7417068-0 (Version None)
Quarter: 2011Q2

REPORT INFORMATION
  Report Type: 
  Country: None (occurrence: None)
  Receive Date: 20110415
  Receipt Date: 20110330
  Transmission Date: 20111010
  Serious: Yes (Other)
  Sender: FDA-Public Use
  Company Number: US-BAYER-200934370NA

PATIENT
  Age: 68 Year
  Sex: Male

DRUGS (12)
  1. TRASYLOL [Suspect]
     Indication: AORTIC VALVE REPLACEMENT
     Dosage: 10 ML FOLLOWED BY IV DRIP 200CC OVER 5 HOURS.
     Dates: start: 20040921, end: 20040921
  2. PLATELETS [Concomitant]
     Dosage: 1 U, UNK
     Dates: start: 20040921, end: 20040921
  3. PLAVIX [Concomitant]
     Dosage: 75 MG, UNK
     Route: 048
  4. PLASMA [Concomitant]
     Dosage: 2 U, UNK
     Dates: start: 20040921
  5. VERSED [Concomitant]
     Dosage: UNK
     Route: 042
     Dates: start: 20040921, end: 20040921
  6. ASPIRIN [Concomitant]
     Dosage: 325 MG, UNK
     Route: 048
  7. INSULIN [Concomitant]
     Dosage: UNK
     Route: 042
     Dates: start: 20040921, end: 20040921
  8. RED BLOOD CELLS [Concomitant]
     Dosage: UNK
     Dates: start: 20040921, end: 20040921
  9. LIPITOR [Concomitant]
     Dosage: 40 MG, UNK
     Route: 048
  10. TRASYLOL [Suspect]
     Indication: AORTIC ANEURYSM REPAIR
  11. TRASYLOL [Suspect]
     Indication: ATRIAL SEPTAL DEFECT REPAIR
  12. VASOPRESSIN [Concomitant]
     Dosage: 0.5 MG, UNK
     Route: 042
     Dates: start: 20040921, end: 20040921

REACTIONS (12)
  - ANXIETY [None]
  - MULTI-ORGAN FAILURE [None]
  - NERVOUSNESS [None]
  - RENAL INJURY [None]
  - INJURY [None]
  - EMOTIONAL DISTRESS [None]
  - FEAR [None]
  - DEPRESSION [None]
  - RENAL FAILURE [None]
  - PAIN [None]
  - ANHEDONIA [None]
  - UNEVALUABLE EVENT [None]
